FAERS Safety Report 9380551 (Version 1)
Quarter: 2013Q3

REPORT INFORMATION
  Report Type: Spontaneous
  Country: JP (occurrence: JP)
  Receive Date: 20130702
  Receipt Date: 20130702
  Transmission Date: 20140515
  Serious: Yes (Disabling)
  Sender: FDA-Public Use
  Company Number: JP-B.I. PHARMACEUTICALS,INC./RIDGEFIELD-2013-BI-08835NB

PATIENT
  Age: 78 Year
  Sex: Female

DRUGS (2)
  1. PRAZAXA [Suspect]
     Indication: ATRIAL FIBRILLATION
     Dosage: 220 MG
     Route: 048
     Dates: start: 201204, end: 20130322
  2. MEVALOTIN [Concomitant]
     Indication: DYSLIPIDAEMIA
     Dosage: 10 MG
     Route: 048

REACTIONS (2)
  - Retinal vein occlusion [Not Recovered/Not Resolved]
  - Retinal haemorrhage [Not Recovered/Not Resolved]
